FAERS Safety Report 5343473-2 (Version None)
Quarter: 2007Q2

REPORT INFORMATION
  Report Type: 
  Country: None (occurrence: None)
  Receive Date: 20070604
  Receipt Date: 20070528
  Transmission Date: 20071010
  Serious: Yes (Death)
  Sender: FDA-Public Use
  Company Number: PHBS2007JP04731

PATIENT
  Age: 85 Year
  Sex: Female
  Weight: 40 kg

DRUGS (9)
  1. ZOMETA [Suspect]
     Indication: HYPERCALCAEMIA
     Dosage: 2 MG, UNK
     Dates: start: 20070313, end: 20070313
  2. THEOPHYLLINE [Concomitant]
  3. HYPEN [Suspect]
     Indication: PROPHYLAXIS
     Dosage: 200 MG, UNK
     Route: 048
     Dates: start: 20070313, end: 20070313
  4. MONILAC [Concomitant]
     Indication: HEPATIC ENCEPHALOPATHY
     Dosage: 13 G, UNK
     Route: 048
     Dates: start: 20070227
  5. AMINOLEBAN EN [Concomitant]
     Indication: HEPATIC ENCEPHALOPATHY
     Dosage: 50 MG, UNK
     Route: 048
     Dates: start: 20070228
  6. OMEPRAL [Concomitant]
     Indication: GASTRITIS
     Dosage: 10 MG, UNK
     Route: 048
     Dates: start: 20070227
  7. ELCITONIN [Concomitant]
     Indication: HYPERCALCAEMIA
     Dosage: 80 IU, UNK
     Dates: start: 20070213, end: 20070312
  8. LACTEC [Concomitant]
     Dosage: 1000 ML, UNK
     Route: 042
     Dates: start: 20070309, end: 20070314
  9. AMINOLEBAN [Concomitant]
     Indication: HEPATIC ENCEPHALOPATHY
     Dosage: 500 ML, UNK
     Route: 042
     Dates: start: 20070214, end: 20070312

REACTIONS (9)
  - ANAPHYLACTIC SHOCK [None]
  - ANOREXIA [None]
  - BLOOD PRESSURE DECREASED [None]
  - HEART RATE INCREASED [None]
  - LIFE SUPPORT [None]
  - MALAISE [None]
  - OXYGEN SATURATION DECREASED [None]
  - RESPIRATORY FAILURE [None]
  - WHEEZING [None]
